FAERS Safety Report 7304308-1 (Version None)
Quarter: 2011Q1

REPORT INFORMATION
  Report Type: 
  Country: None (occurrence: None)
  Receive Date: 20110221
  Receipt Date: 20110217
  Transmission Date: 20110831
  Serious: Yes (Other)
  Sender: FDA-Public Use
  Company Number: DE-AMGEN-DEUSP2011008761

PATIENT
  Age: 70 Year
  Sex: Male

DRUGS (4)
  1. NPLATE [Suspect]
     Indication: MYELODYSPLASTIC SYNDROME
     Dosage: 9 A?G/KG, QWK
     Route: 058
     Dates: start: 20100301
  2. SILODOSIN [Concomitant]
     Indication: PRODUCT USED FOR UNKNOWN INDICATION
  3. MOVICOL                            /01053601/ [Concomitant]
     Indication: CONSTIPATION
     Dosage: 30 MG, UNK
  4. MICTONORM [Concomitant]
     Indication: PRODUCT USED FOR UNKNOWN INDICATION
     Dosage: 30 MG, UNK
     Route: 048

REACTIONS (1)
  - HALLUCINATION, VISUAL [None]
